FAERS Safety Report 20389530 (Version 1)
Quarter: 2022Q1

REPORT INFORMATION
  Report Type: Spontaneous
  Country: US (occurrence: None)
  Receive Date: 20220128
  Receipt Date: 20220128
  Transmission Date: 20220424
  Serious: Yes (Hospitalization, Other)
  Sender: FDA-Public Use
  Company Number: US-MLMSERVICE-20220119-3320297-1

PATIENT
  Age: 14 Year
  Sex: Female

DRUGS (3)
  1. METHOTREXATE [Suspect]
     Active Substance: METHOTREXATE
     Indication: B precursor type acute leukaemia
     Route: 042
  2. METHOTREXATE [Suspect]
     Active Substance: METHOTREXATE
     Dosage: MAINTENANCE PHASE
     Route: 037
  3. LEUCOVORIN [Concomitant]
     Active Substance: LEUCOVORIN
     Indication: B precursor type acute leukaemia
     Route: 065

REACTIONS (6)
  - Aphasia [Recovered/Resolved]
  - Dysarthria [Recovered/Resolved]
  - Neurotoxicity [Recovered/Resolved]
  - Paraparesis [Recovered/Resolved]
  - Facial paralysis [Recovered/Resolved]
  - Speech disorder [Recovered/Resolved]
